FAERS Safety Report 21358757 (Version 1)
Quarter: 2022Q3

REPORT INFORMATION
  Report Type: Spontaneous
  Country: US (occurrence: US)
  Receive Date: 20220921
  Receipt Date: 20220921
  Transmission Date: 20221027
  Serious: Yes (Other)
  Sender: FDA-Public Use
  Company Number: US-CBL-001434

PATIENT
  Age: 41 Year
  Sex: Male

DRUGS (11)
  1. MYCOPHENOLATE MOFETIL [Suspect]
     Active Substance: MYCOPHENOLATE MOFETIL
     Indication: Acute kidney injury
     Route: 065
  2. GLECAPREVIR [Suspect]
     Active Substance: GLECAPREVIR
     Indication: Hepatitis C
     Route: 065
  3. PIBRENTASVIR [Suspect]
     Active Substance: PIBRENTASVIR
     Indication: Hepatitis C
     Route: 065
  4. HYDROXYCHLOROQUINE [Suspect]
     Active Substance: HYDROXYCHLOROQUINE
     Indication: Vasculitis
     Route: 065
  5. AMPICILLIN [Concomitant]
     Active Substance: AMPICILLIN
     Indication: Endocarditis
     Route: 042
  6. CEFTRIAXONE [Concomitant]
     Active Substance: CEFTRIAXONE
     Indication: Endocarditis
     Dosage: VIA A PERIPHERALLY INSERTED CENTRAL CATHETER
     Route: 042
  7. AMPICILLIN [Concomitant]
     Active Substance: AMPICILLIN
     Indication: Encephalitis
     Route: 042
  8. CEFTRIAXONE [Concomitant]
     Active Substance: CEFTRIAXONE
     Indication: Encephalitis
     Dosage: VIA A PERIPHERALLY INSERTED CENTRAL CATHETER
     Route: 042
  9. AMPICILLIN [Concomitant]
     Active Substance: AMPICILLIN
     Indication: Enterococcal infection
     Route: 042
  10. CEFTRIAXONE [Concomitant]
     Active Substance: CEFTRIAXONE
     Indication: Enterococcal infection
     Dosage: VIA A PERIPHERALLY INSERTED CENTRAL CATHETER
     Route: 042
  11. MYCOPHENOLATE MOFETIL [Suspect]
     Active Substance: MYCOPHENOLATE MOFETIL
     Indication: Glomerulonephritis rapidly progressive
     Route: 065

REACTIONS (5)
  - Enterococcal infection [Unknown]
  - Acute kidney injury [Recovering/Resolving]
  - Glomerulonephritis rapidly progressive [Recovering/Resolving]
  - Condition aggravated [Recovering/Resolving]
  - Product use in unapproved indication [Unknown]
